FAERS Safety Report 4558377-2 (Version None)
Quarter: 2005Q1

REPORT INFORMATION
  Report Type: 
  Country: None (occurrence: None)
  Receive Date: 20050113
  Receipt Date: 20050104
  Transmission Date: 20050727
  Serious: Yes (Hospitalization, Other)
  Sender: FDA-Public Use
  Company Number: 200510001BCA

PATIENT
  Age: 13 Year
  Sex: Male
  Weight: 102.1 kg

DRUGS (6)
  1. GAMUNEX [Suspect]
     Dates: start: 20041110
  2. GAMUNEX [Suspect]
     Dates: start: 20041110
  3. GAMUNEX [Suspect]
     Dates: start: 20041110
  4. GAMUNEX [Suspect]
     Dates: start: 20041110
  5. GAMUNEX [Suspect]
     Dates: start: 20041111
  6. GAMUNEX [Suspect]

REACTIONS (2)
  - BODY TEMPERATURE INCREASED [None]
  - NEUTROPENIA [None]
